FAERS Safety Report 6892469-8 (Version None)
Quarter: 2010Q3

REPORT INFORMATION
  Report Type: 
  Country: None (occurrence: None)
  Receive Date: 20100731
  Receipt Date: 20080521
  Transmission Date: 20110219
  Serious: No
  Sender: FDA-Public Use
  Company Number: US-PFIZER INC-2008044477

PATIENT
  Sex: Male
  Weight: 81.65 kg

DRUGS (11)
  1. NEURONTIN [Suspect]
     Indication: NEUROPATHY PERIPHERAL
  2. NEURONTIN [Suspect]
     Indication: FIBROMYALGIA
  3. GLUCOTROL [Concomitant]
  4. GLUCOPHAGE [Concomitant]
  5. ZESTRIL [Concomitant]
  6. HYDROCHLOROTHIAZIDE [Concomitant]
  7. METOPROLOL TARTRATE [Concomitant]
  8. TAMSULOSIN HYDROCHLORIDE [Concomitant]
  9. TRAMADOL HYDROCHLORIDE [Concomitant]
  10. COLCHICINE [Concomitant]
  11. ACETYLSALICYLIC ACID SRT [Concomitant]

REACTIONS (1)
  - DRUG INEFFECTIVE FOR UNAPPROVED INDICATION [None]
